FAERS Safety Report 13580024 (Version 3)
Quarter: 2017Q3

REPORT INFORMATION
  Report Type: Spontaneous
  Country: GB (occurrence: GB)
  Receive Date: 20170525
  Receipt Date: 20170710
  Transmission Date: 20171127
  Serious: Yes (Other)
  Sender: FDA-Public Use
  Company Number: GB-009507513-1705GBR010032

PATIENT
  Sex: Female

DRUGS (8)
  1. NEXPLANON [Suspect]
     Active Substance: ETONOGESTREL
     Dosage: UNK
     Route: 059
     Dates: start: 20160429
  2. PREGABALIN. [Concomitant]
     Active Substance: PREGABALIN
     Indication: SCIATICA
     Dosage: 75 MG, BID, 28 TABS
     Route: 048
     Dates: start: 20170201
  3. ACETAMINOPHEN AND CODEINE [Concomitant]
     Active Substance: ACETAMINOPHEN\CODEINE PHOSPHATE
     Indication: SCIATICA
     Dosage: STRENGTH: 30/500, 8T MAX
     Route: 048
     Dates: start: 20160420
  4. SERTRALINE HYDROCHLORIDE. [Concomitant]
     Active Substance: SERTRALINE HYDROCHLORIDE
     Dosage: INCREASED TO 100 MG
     Route: 048
     Dates: start: 20161220
  5. PREGABALIN. [Concomitant]
     Active Substance: PREGABALIN
     Dosage: 75 MG, BID, 56 TABS
     Route: 048
     Dates: start: 20170420
  6. SERTRALINE HYDROCHLORIDE. [Concomitant]
     Active Substance: SERTRALINE HYDROCHLORIDE
     Indication: DEPRESSED MOOD
     Dosage: 50 MG, UNK
     Route: 048
     Dates: end: 20161220
  7. SCOPOLAMINE [Concomitant]
     Active Substance: SCOPOLAMINE
     Dosage: 10 MG, UNK
     Route: 048
     Dates: start: 20161220
  8. MEBEVERINE [Concomitant]
     Active Substance: MEBEVERINE
     Indication: ABDOMINAL PAIN
     Dosage: 135 MG, TID, 84 TABS
     Route: 048
     Dates: start: 20170201

REACTIONS (9)
  - Weight increased [Unknown]
  - Abdominal pain [Recovered/Resolved]
  - Unintended pregnancy [Unknown]
  - Vaginal haemorrhage [Recovered/Resolved]
  - Pregnancy on contraceptive [Unknown]
  - Amenorrhoea [Recovered/Resolved]
  - Nausea [Recovered/Resolved]
  - Vaginal discharge [Recovering/Resolving]
  - Breast tenderness [Recovered/Resolved]

NARRATIVE: CASE EVENT DATE: 20160429
